FAERS Safety Report 7250581-8 (Version None)
Quarter: 2011Q1

REPORT INFORMATION
  Report Type: 
  Country: None (occurrence: None)
  Receive Date: 20110128
  Receipt Date: 20110118
  Transmission Date: 20110831
  Serious: Yes (Hospitalization, Disabling)
  Sender: FDA-Public Use
  Company Number: RO-JNJFOC-20110106105

PATIENT
  Age: 42 Year
  Sex: Female
  Weight: 65 kg

DRUGS (2)
  1. GOLIMUMAB [Suspect]
     Indication: RHEUMATOID ARTHRITIS
     Route: 058
  2. GOLIMUMAB [Suspect]
     Route: 058

REACTIONS (1)
  - ARTHRITIS BACTERIAL [None]
